FAERS Safety Report 11053781 (Version 2)
Quarter: 2015Q2

REPORT INFORMATION
  Report Type: Spontaneous
  Country: AU (occurrence: AU)
  Receive Date: 20150421
  Receipt Date: 20150608
  Transmission Date: 20150821
  Serious: No
  Sender: FDA-Public Use
  Company Number: AU-MUNDIPHARMA DS AND PHARMACOVIGILANCE-GBR-2015-0027003

PATIENT
  Age: 67 Year
  Sex: Male

DRUGS (12)
  1. OXYNORM CAPSULES 20 MG [Suspect]
     Active Substance: OXYCODONE HYDROCHLORIDE
     Indication: NERVE INJURY
     Dosage: 20 MG, TID
     Route: 048
     Dates: start: 20150401, end: 20150404
  2. BUPRENORPHINE HYDROCHLORIDE. [Concomitant]
     Active Substance: BUPRENORPHINE HYDROCHLORIDE
     Dosage: UNK
     Dates: start: 20150316
  3. FLOMAXTRA [Concomitant]
     Active Substance: TAMSULOSIN HYDROCHLORIDE
     Dosage: 400 MCG, UNK
     Route: 065
  4. GABAPENTIN. [Concomitant]
     Active Substance: GABAPENTIN
     Indication: NEURALGIA
     Dosage: 900 MG, TID
     Route: 065
  5. OXYNORM CAPSULES 20 MG [Suspect]
     Active Substance: OXYCODONE HYDROCHLORIDE
     Indication: AMPUTATION STUMP PAIN
     Dosage: 20 MG, TID
     Route: 048
     Dates: start: 20150202, end: 20150317
  6. FRUSEMIDE                          /00032601/ [Suspect]
     Active Substance: FUROSEMIDE
     Indication: PRODUCT USED FOR UNKNOWN INDICATION
     Dosage: UNK
     Route: 048
     Dates: end: 20150323
  7. CYMBALTA [Concomitant]
     Active Substance: DULOXETINE HYDROCHLORIDE
     Indication: DEPRESSION
     Dosage: 60 MG, DAILY
     Route: 065
  8. LIGNOCAINE                         /00033401/ [Concomitant]
     Active Substance: LIDOCAINE HYDROCHLORIDE
     Dosage: 700 MG, DAILY
     Route: 062
  9. OXYNORM CAPSULES 20 MG [Suspect]
     Active Substance: OXYCODONE HYDROCHLORIDE
     Indication: PHANTOM PAIN
  10. PALEXIA [Concomitant]
     Active Substance: TAPENTADOL HYDROCHLORIDE
     Indication: NEURALGIA
     Dosage: 200 MG, BID
  11. KEFLEX [Suspect]
     Active Substance: CEPHALEXIN
     Indication: OSTEOMYELITIS
     Dosage: UNK
     Route: 048
     Dates: start: 20150218, end: 20150219
  12. MAXOLON [Concomitant]
     Active Substance: METOCLOPRAMIDE HYDROCHLORIDE
     Dosage: 10 MG, PRN
     Route: 048

REACTIONS (7)
  - Rash [Recovered/Resolved]
  - Angioedema [Not Recovered/Not Resolved]
  - Pruritus [Not Recovered/Not Resolved]
  - Urticaria [Not Recovered/Not Resolved]
  - Condition aggravated [Not Recovered/Not Resolved]
  - Pruritus [Not Recovered/Not Resolved]
  - Swelling face [Not Recovered/Not Resolved]

NARRATIVE: CASE EVENT DATE: 20150218
